FAERS Safety Report 12507946 (Version 1)
Quarter: 2016Q2

REPORT INFORMATION
  Report Type: Spontaneous
  Country: US (occurrence: None)
  Receive Date: 20160628
  Receipt Date: 20160628
  Transmission Date: 20160815
  Serious: Yes (Other)
  Sender: FDA-Public Use
  Company Number: None

PATIENT
  Age: 26 Year
  Sex: Female
  Weight: 58.97 kg

DRUGS (3)
  1. VITAMIN D [Concomitant]
     Active Substance: CHOLECALCIFEROL
  2. ZOLOFT [Suspect]
     Active Substance: SERTRALINE HYDROCHLORIDE
     Indication: MAJOR DEPRESSION
     Route: 048
  3. ADVIL [Concomitant]
     Active Substance: IBUPROFEN

REACTIONS (15)
  - Feeling drunk [None]
  - Memory impairment [None]
  - Nausea [None]
  - Headache [None]
  - Loss of consciousness [None]
  - Crying [None]
  - Irritability [None]
  - Suicidal ideation [None]
  - Pain [None]
  - Emotional distress [None]
  - Paraesthesia [None]
  - Hypoaesthesia oral [None]
  - Dizziness [None]
  - Impaired driving ability [None]
  - Impaired work ability [None]

NARRATIVE: CASE EVENT DATE: 20160621
